FAERS Safety Report 4800665-6 (Version None)
Quarter: 2005Q3

REPORT INFORMATION
  Report Type: 
  Country: None (occurrence: None)
  Receive Date: 20050929
  Receipt Date: 20050811
  Transmission Date: 20060218
  Serious: No
  Sender: FDA-Public Use
  Company Number: 05P-163-0308105-00

PATIENT
  Age: 33 Year
  Sex: Female
  Weight: 62.1428 kg

DRUGS (4)
  1. HUMIRA [Suspect]
     Indication: CROHN'S DISEASE
     Dosage: 40 MG, 1 IN 2 WK, SUBCUTANEOUS
     Route: 058
     Dates: start: 20050803
  2. LANSOPRAZOLE [Concomitant]
  3. FLUOXETINE HYDROCHLORIDE [Concomitant]
  4. IBUPROFEN [Concomitant]

REACTIONS (2)
  - ARTHRALGIA [None]
  - CONDITION AGGRAVATED [None]
